FAERS Safety Report 22611791 (Version 1)
Quarter: 2023Q2

REPORT INFORMATION
  Report Type: Spontaneous
  Country: US (occurrence: US)
  Receive Date: 20230616
  Receipt Date: 20230616
  Transmission Date: 20230721
  Serious: No
  Sender: FDA-Public Use
  Company Number: US-REVANCE THERAPEUTICS INC.-US-REV-2023-000244

PATIENT

DRUGS (3)
  1. DAXIBOTULINUMTOXIN A-LANM [Suspect]
     Active Substance: DAXIBOTULINUMTOXIN A-LANM
     Indication: Product used for unknown indication
     Dosage: UNK
     Route: 065
     Dates: start: 20230515
  2. RETINOL [Concomitant]
     Active Substance: RETINOL
     Indication: Product used for unknown indication
     Dosage: UNK
     Route: 061
  3. ASCORBIC ACID [Concomitant]
     Active Substance: ASCORBIC ACID
     Indication: Product used for unknown indication
     Dosage: UNK
     Route: 061

REACTIONS (3)
  - Injection site erythema [Recovering/Resolving]
  - Injection site pruritus [Recovering/Resolving]
  - Off label use [Unknown]

NARRATIVE: CASE EVENT DATE: 20230515
